FAERS Safety Report 8103666-8 (Version None)
Quarter: 2012Q1

REPORT INFORMATION
  Report Type: 
  Country: None (occurrence: None)
  Receive Date: 20120201
  Receipt Date: 20120119
  Transmission Date: 20120608
  Serious: Yes (Other)
  Sender: FDA-Public Use
  Company Number: DE-ROCHE-1033696

PATIENT
  Age: 40 Year
  Sex: Male

DRUGS (3)
  1. LUCENTIS [Suspect]
     Route: 050
     Dates: start: 20110101, end: 20110101
  2. LUCENTIS [Suspect]
     Indication: MACULAR OEDEMA
     Route: 050
  3. LUCENTIS [Suspect]
     Route: 050

REACTIONS (2)
  - OCULAR HYPERTENSION [None]
  - BLINDNESS TRANSIENT [None]
